FAERS Safety Report 23761759 (Version 1)
Quarter: 2024Q2

REPORT INFORMATION
  Report Type: Spontaneous
  Country: GR (occurrence: None)
  Receive Date: 20240419
  Receipt Date: 20240419
  Transmission Date: 20240716
  Serious: Yes (Other)
  Sender: FDA-Public Use
  Company Number: GR-ROCHE-3546420

PATIENT
  Age: 44 Year
  Weight: 105 kg

DRUGS (2)
  1. EMICIZUMAB [Suspect]
     Active Substance: EMICIZUMAB
     Indication: Factor VIII deficiency
     Route: 048
     Dates: start: 20200615
  2. COAGULATION FACTOR VIIA HUMAN [Concomitant]
     Active Substance: COAGULATION FACTOR VIIA HUMAN
     Dosage: 80 UG/KG

REACTIONS (1)
  - Arthropathy [Unknown]
